FAERS Safety Report 15848478 (Version 1)
Quarter: 2019Q1

REPORT INFORMATION
  Report Type: Spontaneous
  Country: US (occurrence: US)
  Receive Date: 20190121
  Receipt Date: 20190121
  Transmission Date: 20190417
  Serious: Yes (Other)
  Sender: FDA-Public Use
  Company Number: US-ELI_LILLY_AND_COMPANY-US201901007810

PATIENT
  Age: 56 Year
  Sex: Male

DRUGS (5)
  1. DOXORUBICIN [Concomitant]
     Active Substance: DOXORUBICIN
     Indication: SOFT TISSUE SARCOMA
     Dosage: UNK, UNKNOWN
     Route: 065
  2. LARTRUVO [Suspect]
     Active Substance: OLARATUMAB
     Indication: SOFT TISSUE SARCOMA
     Dosage: UNK UNK, UNKNOWN
     Route: 065
     Dates: start: 20181026
  3. LARTRUVO [Suspect]
     Active Substance: OLARATUMAB
     Dosage: UNK UNK, UNKNOWN
     Route: 065
     Dates: start: 20181102
  4. NEULASTA [Concomitant]
     Active Substance: PEGFILGRASTIM
     Indication: WHITE BLOOD CELL COUNT
     Dosage: UNK, UNKNOWN
     Route: 065
  5. BIOTENE ORAL BALANCE [Concomitant]
     Active Substance: DEVICE\XYLITOL
     Indication: PROPHYLAXIS
     Dosage: UNK UNK, BID
     Route: 065

REACTIONS (9)
  - Full blood count decreased [Unknown]
  - Constipation [Unknown]
  - Decreased appetite [Recovered/Resolved]
  - Nausea [Unknown]
  - Insomnia [Unknown]
  - Abdominal discomfort [Unknown]
  - Fatigue [Unknown]
  - Immune system disorder [Unknown]
  - Dysgeusia [Unknown]

NARRATIVE: CASE EVENT DATE: 20181026
